FAERS Safety Report 18565109 (Version 1)
Quarter: 2020Q4

REPORT INFORMATION
  Report Type: Spontaneous
  Country: US (occurrence: US)
  Receive Date: 20201201
  Receipt Date: 20201201
  Transmission Date: 20210114
  Serious: No
  Sender: FDA-Public Use
  Company Number: US-TEVA-2020-US-1853078

PATIENT
  Age: 58 Year
  Sex: Male

DRUGS (2)
  1. MUPIROCIN TEVA [Suspect]
     Active Substance: MUPIROCIN
     Dosage: DOSE FREQUENCY: ONCE A DAY
     Route: 045
     Dates: start: 20201123
  2. MUPIROCIN TEVA [Suspect]
     Active Substance: MUPIROCIN
     Dosage: DOSE FREQUENCY: TWICE A DAY
     Route: 045
     Dates: start: 20201122

REACTIONS (3)
  - Erythema [Not Recovered/Not Resolved]
  - Nasal congestion [Not Recovered/Not Resolved]
  - Product prescribing error [Unknown]

NARRATIVE: CASE EVENT DATE: 20201122
